FAERS Safety Report 11101205 (Version 1)
Quarter: 2015Q2

REPORT INFORMATION
  Report Type: Spontaneous
  Country: US (occurrence: US)
  Receive Date: 20150508
  Receipt Date: 20150508
  Transmission Date: 20150821
  Serious: Yes (Hospitalization, Other)
  Sender: FDA-Public Use
  Company Number: US-APOTEX-2015AP008981

PATIENT
  Age: 47 Year
  Sex: Male

DRUGS (7)
  1. MODAFINIL TABLETS USP [Suspect]
     Active Substance: MODAFINIL
     Indication: SELF INJURIOUS BEHAVIOUR
     Dosage: 200 MG, UNK
     Route: 065
  2. CLONAZEPAM. [Concomitant]
     Active Substance: CLONAZEPAM
     Indication: ANXIETY
     Dosage: 1 MG, TID
     Route: 048
  3. TRAZODONE [Concomitant]
     Active Substance: TRAZODONE HYDROCHLORIDE
     Indication: SLEEP DISORDER
     Dosage: 100 MG, Q.H.S.
     Route: 065
  4. PAROXETINE [Concomitant]
     Active Substance: PAROXETINE\PAROXETINE HYDROCHLORIDE
     Indication: ANXIETY
     Dosage: 40 MG, Q.AM
     Route: 048
  5. QUETIAPINE [Concomitant]
     Active Substance: QUETIAPINE
     Indication: AGITATION
     Dosage: 200 MG, TID AS NEEDED
     Route: 065
  6. MODAFINIL TABLETS USP [Suspect]
     Active Substance: MODAFINIL
     Indication: AGGRESSION
     Dosage: 100 MG, UNK
     Route: 065
  7. PAROXETINE [Concomitant]
     Active Substance: PAROXETINE\PAROXETINE HYDROCHLORIDE
     Indication: AGGRESSION

REACTIONS (4)
  - Aggression [Recovering/Resolving]
  - Condition aggravated [Recovering/Resolving]
  - Self injurious behaviour [Recovering/Resolving]
  - Off label use [Recovered/Resolved]
